FAERS Safety Report 14473948 (Version 2)
Quarter: 2018Q2

REPORT INFORMATION
  Report Type: Spontaneous
  Country: FR (occurrence: FR)
  Receive Date: 20180201
  Receipt Date: 20180608
  Transmission Date: 20180711
  Serious: Yes (Other)
  Sender: FDA-Public Use
  Company Number: PHHY2018FR014548

PATIENT
  Age: 77 Year
  Sex: Male
  Weight: 70 kg

DRUGS (1)
  1. EXELON PATCH [Suspect]
     Active Substance: RIVASTIGMINE
     Indication: DEMENTIA WITH LEWY BODIES
     Dosage: 9.5 MG, QD, PATCH 10 (CM2)
     Route: 062

REACTIONS (4)
  - Product substitution issue [Not Recovered/Not Resolved]
  - Somnolence [Recovered/Resolved]
  - Withdrawal syndrome [Recovered/Resolved]
  - Decreased appetite [Recovered/Resolved]
